FAERS Safety Report 20424018 (Version 1)
Quarter: 2022Q1

REPORT INFORMATION
  Report Type: Spontaneous
  Country: US (occurrence: US)
  Receive Date: 20220203
  Receipt Date: 20220203
  Transmission Date: 20220424
  Serious: Yes (Disabling)
  Sender: FDA-Public Use
  Company Number: US-EXELIXIS-CABO-21036812

PATIENT
  Age: 64 Year
  Sex: Female

DRUGS (2)
  1. CABOMETYX [Suspect]
     Active Substance: CABOZANTINIB S-MALATE
     Indication: Metastatic renal cell carcinoma
     Dosage: 60 MG, QD
  2. DENOSUMAB [Suspect]
     Active Substance: DENOSUMAB
     Indication: Metastatic renal cell carcinoma

REACTIONS (1)
  - Malignant neoplasm progression [Not Recovered/Not Resolved]
